FAERS Safety Report 14647477 (Version 1)
Quarter: 2018Q1

REPORT INFORMATION
  Report Type: Report from Study
  Country: US (occurrence: US)
  Receive Date: 20180316
  Receipt Date: 20180316
  Transmission Date: 20180509
  Serious: Yes (Hospitalization)
  Sender: FDA-Public Use
  Company Number: US-GILEAD-2018-0316616

PATIENT
  Age: 51 Year
  Sex: Female

DRUGS (1)
  1. AMBRISENTAN [Suspect]
     Active Substance: AMBRISENTAN
     Indication: PULMONARY ARTERIAL HYPERTENSION
     Dosage: 10 MG, QD
     Route: 065
     Dates: start: 20170214

REACTIONS (12)
  - Visual impairment [Unknown]
  - Post-traumatic stress disorder [Not Recovered/Not Resolved]
  - Influenza [Not Recovered/Not Resolved]
  - Fall [Unknown]
  - Oedema [Unknown]
  - Upper limb fracture [Unknown]
  - Memory impairment [Not Recovered/Not Resolved]
  - Clavicle fracture [Unknown]
  - Rib fracture [Unknown]
  - Loss of personal independence in daily activities [Unknown]
  - Malaise [Not Recovered/Not Resolved]
  - Insomnia [Not Recovered/Not Resolved]
